FAERS Safety Report 5299944-0 (Version None)
Quarter: 2007Q2

REPORT INFORMATION
  Report Type: 
  Country: None (occurrence: None)
  Receive Date: 20070417
  Receipt Date: 20070405
  Transmission Date: 20071010
  Serious: Yes (Other)
  Sender: FDA-Public Use
  Company Number: US-PFIZER INC-2007027148

PATIENT
  Age: 40 Year
  Sex: Female

DRUGS (4)
  1. CHANTIX [Suspect]
  2. TOPROL-XL [Concomitant]
  3. UNIRETIC [Concomitant]
  4. LEXAPRO [Concomitant]

REACTIONS (4)
  - ANGIOEDEMA [None]
  - HYPERSENSITIVITY [None]
  - PARAESTHESIA [None]
  - URTICARIA [None]
